FAERS Safety Report 6226723-X (Version None)
Quarter: 2009Q2

REPORT INFORMATION
  Report Type: 
  Country: None (occurrence: None)
  Receive Date: 20090612
  Receipt Date: 20090604
  Transmission Date: 20091009
  Serious: Yes (Hospitalization)
  Sender: FDA-Public Use
  Company Number: US-ROCHE-636718

PATIENT

DRUGS (2)
  1. CAPECITABINE [Suspect]
     Indication: COLORECTAL CANCER
     Dosage: STRENGTH: 500 MG AND 150 MG
     Route: 048
     Dates: start: 20090414, end: 20090530
  2. NAPROXEN [Concomitant]

REACTIONS (2)
  - DEHYDRATION [None]
  - INTESTINAL OBSTRUCTION [None]
